FAERS Safety Report 4840015-2 (Version None)
Quarter: 2005Q4

REPORT INFORMATION
  Report Type: 
  Country: None (occurrence: None)
  Receive Date: 20051125
  Receipt Date: 20051115
  Transmission Date: 20060501
  Serious: Yes (Hospitalization, Disabling)
  Sender: FDA-Public Use
  Company Number: US016378

PATIENT
  Age: 52 Year
  Sex: Male

DRUGS (2)
  1. MODASOMIL [Suspect]
     Indication: NARCOLEPSY
     Dosage: 200 MG QD ORAL
     Route: 048
     Dates: start: 20050801, end: 20051101
  2. ZURCAL [Concomitant]

REACTIONS (2)
  - AEROPHAGIA [None]
  - ERUCTATION [None]
